FAERS Safety Report 9216462 (Version 1)
Quarter: 2013Q2

REPORT INFORMATION
  Report Type: Spontaneous
  Country: GB (occurrence: None)
  Receive Date: 20130402
  Receipt Date: 20130402
  Transmission Date: 20140414
  Serious: Yes (Other)
  Sender: FDA-Public Use
  Company Number: AUR-APL-2013-02646

PATIENT
  Age: 81 Year
  Sex: Male
  Weight: 88.96 kg

DRUGS (7)
  1. AMLODIPINE (AMLODIPINE) [Suspect]
     Indication: ESSENTIAL HYPERTENSION
     Dosage: 5 MG, ORAL
     Route: 048
     Dates: start: 20130207
  2. ALENDRONIC ACID (ALENDRONIC ACID) [Concomitant]
  3. ALLOPURINOL [Concomitant]
  4. CETRABEN EMOLLIENT CREAM (PARAFFIN) [Concomitant]
  5. CLOBETASONE BUTYRATE (CLOBETASONE BUTYRATE) [Concomitant]
  6. HYDROCORTISONE (HYDROCORTISONE) [Concomitant]
  7. PREDNISOLONE (PREDNISOLONE) [Concomitant]

REACTIONS (2)
  - Rash erythematous [None]
  - Rash vesicular [None]
